FAERS Safety Report 7773629-0 (Version None)
Quarter: 2011Q3

REPORT INFORMATION
  Report Type: 
  Country: None (occurrence: None)
  Receive Date: 20110923
  Receipt Date: 20110912
  Transmission Date: 20111222
  Serious: Yes (Hospitalization, Other)
  Sender: FDA-Public Use
  Company Number: US-BIOGENIDEC-2011BI035317

PATIENT
  Sex: Female

DRUGS (1)
  1. AVONEX [Suspect]
     Indication: MULTIPLE SCLEROSIS
     Route: 030
     Dates: start: 20060101

REACTIONS (7)
  - SARCOIDOSIS [None]
  - URINARY INCONTINENCE [None]
  - BACK PAIN [None]
  - HYPERTENSION [None]
  - GAIT DISTURBANCE [None]
  - DYSKINESIA [None]
  - CARDIAC DISORDER [None]
